FAERS Safety Report 11240611 (Version 2)
Quarter: 2015Q3

REPORT INFORMATION
  Report Type: Spontaneous
  Country: BR (occurrence: BR)
  Receive Date: 20150706
  Receipt Date: 20150806
  Transmission Date: 20151125
  Serious: Yes (Other)
  Sender: FDA-Public Use
  Company Number: BR-SA-2015SA095435

PATIENT
  Age: 82 Year
  Sex: Female
  Weight: 50 kg

DRUGS (6)
  1. GALVUS [Concomitant]
     Active Substance: VILDAGLIPTIN
     Indication: TYPE 2 DIABETES MELLITUS
     Route: 048
  2. VASOGARD [Concomitant]
     Active Substance: CILOSTAZOL
     Indication: VARICOSE VEIN
     Route: 065
  3. CALTREN [Concomitant]
     Active Substance: NITRENDIPINE
     Indication: CARDIAC DISORDER
     Route: 065
  4. CORUS [Concomitant]
     Active Substance: LOSARTAN POTASSIUM
     Indication: CARDIAC DISORDER
     Route: 065
  5. LANTUS [Suspect]
     Active Substance: INSULIN GLARGINE
     Indication: TYPE 2 DIABETES MELLITUS
     Route: 058
     Dates: start: 2010
  6. SIMVASTATIN. [Concomitant]
     Active Substance: SIMVASTATIN
     Route: 065

REACTIONS (3)
  - Asthenia [Not Recovered/Not Resolved]
  - Memory impairment [Not Recovered/Not Resolved]
  - Diarrhoea [Recovered/Resolved]

NARRATIVE: CASE EVENT DATE: 2012
